FAERS Safety Report 14496779 (Version 5)
Quarter: 2020Q1

REPORT INFORMATION
  Report Type: Spontaneous
  Country: PR (occurrence: PR)
  Receive Date: 20180207
  Receipt Date: 20200310
  Transmission Date: 20200409
  Serious: No
  Sender: FDA-Public Use
  Company Number: PR-PFIZER INC-2017260656

PATIENT
  Age: 77 Year
  Sex: Female
  Weight: 64 kg

DRUGS (14)
  1. XELJANZ [Suspect]
     Active Substance: TOFACITINIB CITRATE
     Indication: RHEUMATOID ARTHRITIS
     Dosage: 5 MG, 1X/DAY
  2. XELJANZ [Suspect]
     Active Substance: TOFACITINIB CITRATE
     Dosage: 5 MG, 2X/DAY
     Route: 048
     Dates: start: 2017
  3. DOXAZOSIN [Concomitant]
     Active Substance: DOXAZOSIN MESYLATE
     Indication: HYPERTENSION
     Dosage: 2 MG, 1X/DAY (NIGHTLY)
     Route: 048
     Dates: start: 2017
  4. CANDESARTAN. [Concomitant]
     Active Substance: CANDESARTAN
     Indication: HYPERTENSION
     Dosage: 60 MG, 1X/DAY
  5. ISOSORBIDE. [Concomitant]
     Active Substance: ISOSORBIDE
     Indication: ANGINA PECTORIS
     Dosage: 60 MG, 1X/DAY
     Route: 048
     Dates: start: 1998
  6. CANDESARTAN. [Concomitant]
     Active Substance: CANDESARTAN
     Dosage: 32 MG, 1X/DAY [MORNING]
     Route: 048
     Dates: start: 2015
  7. AMLODIPINE [Concomitant]
     Active Substance: AMLODIPINE BESYLATE
     Indication: HYPERTENSION
     Dosage: 10 MG, 1X/DAY (STARTED TAKING IT 10-15 YEARS AGO)
  8. XELJANZ [Suspect]
     Active Substance: TOFACITINIB CITRATE
     Dosage: 5 MG, 2X/DAY
     Route: 048
  9. RALOXIFENE. [Concomitant]
     Active Substance: RALOXIFENE
     Indication: HYPERTENSION
     Dosage: 60 MG, 1X/DAY
  10. XELJANZ [Suspect]
     Active Substance: TOFACITINIB CITRATE
     Dosage: 5 MG, 1X/DAY
     Route: 048
     Dates: start: 2017, end: 2017
  11. ISOSORBIDE. [Concomitant]
     Active Substance: ISOSORBIDE
     Indication: BLOOD PRESSURE ABNORMAL
  12. XELJANZ [Suspect]
     Active Substance: TOFACITINIB CITRATE
     Indication: SPINAL DISORDER
     Dosage: 5 MG, 1X/DAY
  13. CANDESARTAN. [Concomitant]
     Active Substance: CANDESARTAN
     Dosage: 16 MG, 1X/DAY [AT NIGHT]
     Route: 048
     Dates: start: 2015
  14. ATORVASTATIN [Concomitant]
     Active Substance: ATORVASTATIN
     Indication: BLOOD CHOLESTEROL ABNORMAL
     Dosage: 40 MG, 1X/DAY (STARTED TAKING IT 15 YEARS AGO)
     Route: 048

REACTIONS (6)
  - Pain in extremity [Not Recovered/Not Resolved]
  - Pain [Not Recovered/Not Resolved]
  - Movement disorder [Unknown]
  - Product prescribing error [Unknown]
  - Arthropathy [Not Recovered/Not Resolved]
  - Sleep disorder [Not Recovered/Not Resolved]

NARRATIVE: CASE EVENT DATE: 201801
